FAERS Safety Report 25074323 (Version 1)
Quarter: 2025Q1

REPORT INFORMATION
  Report Type: Spontaneous
  Country: FR (occurrence: FR)
  Receive Date: 20250313
  Receipt Date: 20250313
  Transmission Date: 20250409
  Serious: Yes (Disabling, Other)
  Sender: PFIZER
  Company Number: None

PATIENT
  Age: 43 Year
  Sex: Female
  Weight: 104 kg

DRUGS (6)
  1. SOLU-MEDROL [Suspect]
     Active Substance: METHYLPREDNISOLONE SODIUM SUCCINATE
     Route: 030
     Dates: start: 19960101, end: 19961209
  2. SOLU-MEDROL [Suspect]
     Active Substance: METHYLPREDNISOLONE SODIUM SUCCINATE
     Indication: Multiple sclerosis
     Route: 042
     Dates: start: 20090104, end: 20100608
  3. MITOXANTRONE [Suspect]
     Active Substance: MITOXANTRONE HYDROCHLORIDE
     Indication: Multiple sclerosis
     Route: 042
     Dates: start: 20020402, end: 20020819
  4. INTERFERON [Suspect]
     Active Substance: INTERFERON
     Indication: Multiple sclerosis
     Route: 058
     Dates: start: 19960402, end: 20060125
  5. CELLCEPT [Suspect]
     Active Substance: MYCOPHENOLATE MOFETIL
     Indication: Multiple sclerosis
     Dosage: 2 G, 1X/DAY
     Route: 048
     Dates: start: 20100531, end: 20150809
  6. BIOTIN [Suspect]
     Active Substance: BIOTIN
     Indication: Multiple sclerosis
     Dosage: 300 MG, 1X/DAY
     Route: 048
     Dates: start: 20171110, end: 20200504

REACTIONS (3)
  - Cardiac failure [Not Recovered/Not Resolved]
  - Ejection fraction decreased [Not Recovered/Not Resolved]
  - Dilated cardiomyopathy [Not Recovered/Not Resolved]

NARRATIVE: CASE EVENT DATE: 20190322
